FAERS Safety Report 21600759 (Version 2)
Quarter: 2022Q4

REPORT INFORMATION
  Report Type: Spontaneous
  Country: EG (occurrence: EG)
  Receive Date: 20221116
  Receipt Date: 20221125
  Transmission Date: 20230112
  Serious: No
  Sender: FDA-Public Use
  Company Number: EG-NOVOPROD-979531

PATIENT
  Age: 910 Month
  Sex: Female
  Weight: 80 kg

DRUGS (7)
  1. INSULIN HUMAN [Suspect]
     Active Substance: INSULIN HUMAN
     Indication: Diabetes mellitus
     Dosage: UNK
     Route: 058
  2. INSULIN HUMAN [Suspect]
     Active Substance: INSULIN HUMAN
     Dosage: 60 IU, QD (40 IU/MORNING AND 20 IU/ NIGHT)
     Route: 058
  3. INSULIN HUMAN [Suspect]
     Active Substance: INSULIN HUMAN
     Dosage: 50 IU, QD (30 IU/MORNRNING AND 10 IU/NIGHT)
     Route: 058
     Dates: start: 2012
  4. BISOPROLOL FUMARATE [Concomitant]
     Active Substance: BISOPROLOL FUMARATE
     Indication: Hypertension
     Dosage: 1 DF, QD
     Route: 048
  5. CRESTOR [Concomitant]
     Active Substance: ROSUVASTATIN CALCIUM
     Indication: Prophylaxis
     Dosage: 1 DF, 4 TIMES WEEKLY (EVERY 2 DAYS)
     Route: 048
  6. CRESTOR [Concomitant]
     Active Substance: ROSUVASTATIN CALCIUM
     Indication: Thrombosis prophylaxis
  7. DEPOVIT B12 [Concomitant]
     Indication: Prophylaxis
     Dosage: UNK

REACTIONS (2)
  - Cataract [Recovered/Resolved]
  - Hypothyroidism [Unknown]

NARRATIVE: CASE EVENT DATE: 20120101
